FAERS Safety Report 4645340-6 (Version None)
Quarter: 2005Q2

REPORT INFORMATION
  Report Type: 
  Country: None (occurrence: None)
  Receive Date: 20050422
  Receipt Date: 20050411
  Transmission Date: 20051028
  Serious: Yes (Other)
  Sender: FDA-Public Use
  Company Number: 2005058904

PATIENT
  Age: 87 Year
  Sex: Female

DRUGS (6)
  1. BEXTRA [Suspect]
     Indication: ARTHRALGIA
     Dosage: (40 MG), ORAL
     Route: 048
     Dates: start: 20050301
  2. ISOSORBIDE MONONITRATE [Concomitant]
  3. GLIPIZIDE [Concomitant]
  4. DURAPATITE (DURAPATITE) [Concomitant]
  5. TYLEX (CARBINOXAMINE MALEATE, PARACETAMOL, PHENYLEPHRINE HYDROCHLORIDE [Concomitant]
  6. AMLODIPINE [Concomitant]

REACTIONS (3)
  - ABDOMINAL PAIN [None]
  - COUGH [None]
  - ERYTHEMA [None]
